FAERS Safety Report 5581262-4 (Version None)
Quarter: 2007Q4

REPORT INFORMATION
  Report Type: 
  Country: None (occurrence: None)
  Receive Date: 20071130
  Receipt Date: 20070628
  Transmission Date: 20080405
  Serious: No
  Sender: FDA-Public Use
  Company Number: US200707001659

PATIENT
  Age: 62 Year
  Sex: Male

DRUGS (7)
  1. BYETTA [Suspect]
     Indication: DIABETES MELLITUS
     Dosage: 5 UG, 2/D, SUBCUTANEOUS
     Route: 058
     Dates: start: 20070605
  2. HUMALOG MIX 75/25 [Concomitant]
  3. HUMALOG [Concomitant]
  4. OMACOR [Concomitant]
  5. METOPROLOL TARTRATE [Concomitant]
  6. CRESTOR [Concomitant]
  7. PLAVIX [Concomitant]

REACTIONS (3)
  - BLOOD GLUCOSE INCREASED [None]
  - INJECTION SITE CALCIFICATION [None]
  - NAUSEA [None]
